FAERS Safety Report 5490939-0 (Version None)
Quarter: 2007Q4

REPORT INFORMATION
  Report Type: 
  Country: None (occurrence: None)
  Receive Date: 20071019
  Receipt Date: 20071012
  Transmission Date: 20080405
  Serious: Yes (Other)
  Sender: FDA-Public Use
  Company Number: CA-ASTRAZENECA-2007UW23898

PATIENT
  Age: 63 Year
  Sex: Female

DRUGS (4)
  1. ZESTRIL [Suspect]
     Route: 048
  2. PRINIVIL [Suspect]
     Route: 048
  3. NOVO-SPIROINE [Concomitant]
  4. PREMARIN [Concomitant]

REACTIONS (3)
  - HYPERSENSITIVITY [None]
  - OEDEMA MOUTH [None]
  - TONGUE OEDEMA [None]
